FAERS Safety Report 9433070 (Version 3)
Quarter: 2013Q3

REPORT INFORMATION
  Report Type: Spontaneous
  Country: US (occurrence: US)
  Receive Date: 20130731
  Receipt Date: 20130812
  Transmission Date: 20140515
  Serious: No
  Sender: FDA-Public Use
  Company Number: US-009507513-1307USA017179

PATIENT
  Age: 84 Year
  Sex: Male
  Weight: 80.73 kg

DRUGS (6)
  1. CLARITIN [Suspect]
     Indication: SNEEZING
     Dosage: 10 MG, ONCE
     Route: 048
     Dates: start: 20130620
  2. CLARITIN [Suspect]
     Indication: RHINORRHOEA
  3. SIMVASTATIN [Concomitant]
     Indication: BLOOD CHOLESTEROL INCREASED
     Dosage: UNK, UNKNOWN
  4. ALLOPURINOL [Concomitant]
     Indication: GOUT
     Dosage: UNK, UNKNOWN
  5. TIMOLOL [Concomitant]
     Indication: GLAUCOMA
     Dosage: UNK, UNKNOWN
  6. LATANOPROST [Concomitant]
     Indication: GLAUCOMA
     Dosage: UNK, UNKNOWN

REACTIONS (5)
  - Feeling abnormal [Unknown]
  - Nervousness [Unknown]
  - Somnolence [Recovering/Resolving]
  - Dizziness [Recovering/Resolving]
  - Asthenia [Recovering/Resolving]
